FAERS Safety Report 23445300 (Version 1)
Quarter: 2024Q1

REPORT INFORMATION
  Report Type: Report from Study
  Country: NO (occurrence: NO)
  Receive Date: 20240126
  Receipt Date: 20240126
  Transmission Date: 20240410
  Serious: Yes (Life-Threatening, Other)
  Sender: FDA-Public Use
  Company Number: NO-JNJFOC-20240156043

PATIENT

DRUGS (1)
  1. TALQUETAMAB [Suspect]
     Active Substance: TALQUETAMAB
     Indication: Plasma cell myeloma
     Route: 065
     Dates: start: 20230413

REACTIONS (8)
  - Neutropenia [Recovered/Resolved]
  - Cytokine release syndrome [Recovered/Resolved]
  - Bone pain [Recovered/Resolved]
  - Lymphopenia [Recovered/Resolved]
  - Rash maculo-papular [Recovered/Resolved]
  - Nail disorder [Not Recovered/Not Resolved]
  - Dysgeusia [Not Recovered/Not Resolved]
  - Dry skin [Not Recovered/Not Resolved]

NARRATIVE: CASE EVENT DATE: 20230414
